FAERS Safety Report 16008472 (Version 1)
Quarter: 2019Q1

REPORT INFORMATION
  Report Type: Spontaneous
  Country: FR (occurrence: FR)
  Receive Date: 20190226
  Receipt Date: 20190226
  Transmission Date: 20190418
  Serious: Yes (Other)
  Sender: FDA-Public Use
  Company Number: FR-ARBOR PHARMACEUTICALS, LLC-FR-2019ARB000268

PATIENT
  Age: 30 Year
  Sex: Female

DRUGS (3)
  1. OVITRELLE [Suspect]
     Active Substance: CHORIOGONADOTROPIN ALFA
     Indication: IN VITRO FERTILISATION
     Dosage: UNK
     Dates: start: 20181202
  2. MENOTROPHIN [Suspect]
     Active Substance: MENOTROPINS
     Indication: IN VITRO FERTILISATION
     Dosage: 150 (UNSPECIFIED UNIT)
     Route: 065
     Dates: start: 20181122, end: 20181129
  3. TRIPTODUR [Suspect]
     Active Substance: TRIPTORELIN
     Indication: IN VITRO FERTILISATION
     Dosage: UNK
     Route: 065
     Dates: start: 20181103

REACTIONS (9)
  - Abdominal pain lower [Unknown]
  - Dizziness [Unknown]
  - Nausea [Unknown]
  - Abdominal discomfort [Unknown]
  - Fatigue [Unknown]
  - Insomnia [Unknown]
  - Breast pain [Unknown]
  - Ovarian hyperstimulation syndrome [Unknown]
  - Back pain [Unknown]

NARRATIVE: CASE EVENT DATE: 20190110
